FAERS Safety Report 5228260-8 (Version None)
Quarter: 2007Q1

REPORT INFORMATION
  Report Type: 
  Country: None (occurrence: None)
  Receive Date: 20070130
  Receipt Date: 20070119
  Transmission Date: 20070707
  Serious: Yes (Hospitalization)
  Sender: FDA-Public Use
  Company Number: 2006-02999

PATIENT
  Age: 60 Year
  Sex: Female

DRUGS (29)
  1. VELCADE [Suspect]
     Dosage: SEE IMAGE
     Dates: start: 20060506, end: 20060516
  2. VELCADE [Suspect]
     Dosage: SEE IMAGE
     Dates: start: 20060622, end: 20060702
  3. MELPHALAN (MELPHALAN) VIAL [Suspect]
     Dosage: SEE IMAGE
     Route: 042
     Dates: start: 20060802
  4. MELPHALAN (MELPHALAN) VIAL [Suspect]
     Dosage: SEE IMAGE
     Route: 042
     Dates: start: 20061025
  5. THALIDOMIDE [Suspect]
     Dosage: SEE IMAGE
     Route: 048
     Dates: start: 20060823, end: 20061003
  6. THALIDOMIDE [Suspect]
     Dosage: SEE IMAGE
     Route: 048
     Dates: start: 20060506
  7. THALIDOMIDE [Suspect]
     Dosage: SEE IMAGE
     Route: 048
     Dates: start: 20060622
  8. DEXAMETHASONE [Suspect]
     Dosage: SEE IMAGE
     Route: 048
     Dates: start: 20060506, end: 20060512
  9. DEXAMETHASONE [Suspect]
     Dosage: SEE IMAGE
     Route: 048
     Dates: start: 20060622, end: 20060625
  10. DEXAMETHASONE [Suspect]
     Dosage: SEE IMAGE
     Route: 048
     Dates: start: 20060823, end: 20061005
  11. CISPLATIN [Suspect]
     Dosage: SEE IMAGE
     Dates: start: 20060506, end: 20060512
  12. CISPLATIN [Suspect]
     Dosage: SEE IMAGE
     Dates: start: 20060622, end: 20060625
  13. DOXORUBICIN HCL [Suspect]
     Dosage: SEE IMAGE
     Dates: start: 20060506, end: 20060512
  14. DOXORUBICIN HCL [Suspect]
     Dosage: SEE IMAGE
     Dates: start: 20060622, end: 20060625
  15. CYCLOPHOSPHAMIDE [Suspect]
     Dosage: SEE IMAGE
     Dates: start: 20060506, end: 20060512
  16. CYCLOPHOSPHAMIDE [Suspect]
     Dosage: SEE IMAGE
     Dates: start: 20060622, end: 20060625
  17. ETOPOSIDE [Suspect]
     Dosage: SEE IMAGE
     Dates: start: 20060506, end: 20060512
  18. ETOPOSIDE [Suspect]
     Dosage: SEE IMAGE
     Dates: start: 20060622, end: 20060625
  19. KYTRIL [Concomitant]
  20. ACYCLOVIR [Concomitant]
  21. GABAPENTIN [Concomitant]
  22. CLONAZEPAM [Concomitant]
  23. OXYCODONE HCL [Concomitant]
  24. MAGNESIUM OXIDE [Concomitant]
  25. CELEXA [Concomitant]
  26. TRAZODONE HYDROCHLORIDE [Concomitant]
  27. FOLIC ACID [Concomitant]
  28. MULTIVITAMINS (ERGOCALCIFEROL, PANTHENOL, NICOTINAMIDE, RIBOFLAVIN, TH [Concomitant]
  29. SIMETHICONE (SIMETICONE) [Concomitant]

REACTIONS (10)
  - ANOREXIA [None]
  - COLITIS [None]
  - COUGH [None]
  - DIARRHOEA [None]
  - DIVERTICULUM [None]
  - DYSPNOEA EXERTIONAL [None]
  - FATIGUE [None]
  - OESOPHAGITIS [None]
  - PNEUMONIA [None]
  - STAPHYLOCOCCAL BACTERAEMIA [None]
